FAERS Safety Report 5727826-6 (Version None)
Quarter: 2008Q2

REPORT INFORMATION
  Report Type: 
  Country: None (occurrence: None)
  Receive Date: 20080505
  Receipt Date: 20080423
  Transmission Date: 20081010
  Serious: Yes (Hospitalization, Other)
  Sender: FDA-Public Use
  Company Number: CA-ELI_LILLY_AND_COMPANY-CA200803004205

PATIENT
  Age: 49 Year
  Sex: Female

DRUGS (5)
  1. FORTEO [Suspect]
     Indication: OSTEOPOROSIS
     Dosage: 20 UG, DAILY (1/D)
     Route: 058
     Dates: start: 20080131, end: 20080311
  2. FORTEO [Suspect]
     Dosage: 20 UG, DAILY (1/D)
     Route: 058
     Dates: start: 20080317
  3. SUPEUDOL [Concomitant]
  4. TYLENOL EXTRA-STRENGTH [Concomitant]
     Dosage: UNK, AS NEEDED
  5. CARBOCAL D [Concomitant]
     Dosage: UNK, 2/D

REACTIONS (3)
  - ARTHRALGIA [None]
  - ASTHMA [None]
  - DYSPNOEA [None]
